FAERS Safety Report 9663318 (Version 2)
Quarter: 2013Q4

REPORT INFORMATION
  Report Type: Report from Study
  Country: US (occurrence: US)
  Receive Date: 20131101
  Receipt Date: 20131119
  Transmission Date: 20140711
  Serious: Yes (Death)
  Sender: FDA-Public Use
  Company Number: US-ROCHE-1298295

PATIENT
  Age: 63 Year
  Sex: Male
  Weight: 54.93 kg

DRUGS (3)
  1. HERCEPTIN [Suspect]
     Indication: GASTRIC CANCER
     Dosage: EVERY 1, 8, 15
     Route: 042
     Dates: start: 20130131, end: 20130215
  2. HERCEPTIN [Suspect]
     Dosage: EVERY 1, 8, 15
     Route: 042
     Dates: start: 20130131, end: 20130215
  3. TAXOTERE [Concomitant]
     Indication: GASTRIC CANCER
     Dosage: EVERY 1, 8, 15
     Route: 042
     Dates: start: 20130131, end: 20130215

REACTIONS (1)
  - Death [Fatal]
